FAERS Safety Report 17425736 (Version 2)
Quarter: 2020Q1

REPORT INFORMATION
  Report Type: Spontaneous
  Country: FR (occurrence: FR)
  Receive Date: 20200217
  Receipt Date: 20200317
  Transmission Date: 20200409
  Serious: Yes (Other)
  Sender: FDA-Public Use
  Company Number: FR-CELLTRION INC.-2020FR018947

PATIENT

DRUGS (1)
  1. TRASTUZUMAB (UNKNOWN) [Suspect]
     Active Substance: TRASTUZUMAB
     Dosage: 9 DF (TOTAL OF 56 MG / KG)

REACTIONS (4)
  - Caesarean section [Unknown]
  - Maternal exposure during pregnancy [Unknown]
  - Vaginal haemorrhage [Unknown]
  - Oligohydramnios [Unknown]
